FAERS Safety Report 25768572 (Version 1)
Quarter: 2025Q3

REPORT INFORMATION
  Report Type: Spontaneous
  Country: US (occurrence: US)
  Receive Date: 20250905
  Receipt Date: 20250905
  Transmission Date: 20251020
  Serious: No
  Sender: BRACCO
  Company Number: US-BLUE EARTH DIAGNOSTICS LIMITED-BED-000057-2020

PATIENT

DRUGS (1)
  1. AXUMIN [Suspect]
     Active Substance: FLUCICLOVINE F-18
     Indication: Product used for unknown indication
     Route: 065

REACTIONS (1)
  - Scan abnormal [Unknown]
